FAERS Safety Report 8487498-7 (Version None)
Quarter: 2012Q3

REPORT INFORMATION
  Report Type: 
  Country: None (occurrence: None)
  Receive Date: 20120705
  Receipt Date: 20120629
  Transmission Date: 20120928
  Serious: Yes (Disabling)
  Sender: FDA-Public Use
  Company Number: GB-US-EMD SERONO, INC.-7133587

PATIENT
  Sex: Female

DRUGS (2)
  1. VAGIFEM [Concomitant]
     Indication: HORMONE REPLACEMENT THERAPY
  2. REBIF [Suspect]
     Indication: PRODUCT USED FOR UNKNOWN INDICATION
     Route: 058

REACTIONS (3)
  - MUSCLE DISORDER [None]
  - VAGINAL PROLAPSE [None]
  - UTERINE DISORDER [None]
